FAERS Safety Report 6524611-2 (Version None)
Quarter: 2010Q1

REPORT INFORMATION
  Report Type: 
  Country: None (occurrence: None)
  Receive Date: 20100104
  Receipt Date: 20091223
  Transmission Date: 20100710
  Serious: Yes (Disabling)
  Sender: FDA-Public Use
  Company Number: PHHY2009IT59862

PATIENT
  Sex: Female

DRUGS (3)
  1. ZOMETA [Suspect]
     Indication: METASTASES TO BONE
     Dosage: 4 MG, QMO
     Dates: start: 20020201, end: 20041101
  2. CISPLATIN [Concomitant]
  3. VINORELBINE [Concomitant]

REACTIONS (3)
  - BONE OPERATION [None]
  - OSTEONECROSIS [None]
  - SEQUESTRECTOMY [None]
